FAERS Safety Report 5454149-5 (Version None)
Quarter: 2007Q3

REPORT INFORMATION
  Report Type: 
  Country: None (occurrence: None)
  Receive Date: 20070917
  Receipt Date: 20070330
  Transmission Date: 20080115
  Serious: Yes (Other)
  Sender: FDA-Public Use
  Company Number: US-ASTRAZENECA-2006UW11334

PATIENT
  Age: 754 Month
  Sex: Female
  Weight: 72.7 kg

DRUGS (4)
  1. SEROQUEL [Suspect]
     Indication: ANXIETY
     Dosage: 200 MG AND 50 MG
     Route: 048
     Dates: start: 20010601, end: 20050301
  2. SEROQUEL [Suspect]
     Indication: DEPRESSION
     Dosage: 200 MG AND 50 MG
     Route: 048
     Dates: start: 20010601, end: 20050301
  3. SEROQUEL [Suspect]
     Indication: BIPOLAR DISORDER
     Dosage: 200 MG AND 50 MG
     Route: 048
     Dates: start: 20010601, end: 20050301
  4. CLOZARIL [Concomitant]

REACTIONS (2)
  - DIABETES MELLITUS [None]
  - KETOACIDOSIS [None]
